FAERS Safety Report 9332835 (Version 1)
Quarter: 2013Q2

REPORT INFORMATION
  Report Type: Spontaneous
  Country: FR (occurrence: FR)
  Receive Date: 20130606
  Receipt Date: 20130606
  Transmission Date: 20140414
  Serious: Yes (Hospitalization)
  Sender: FDA-Public Use
  Company Number: FR-PFIZER INC-2013169506

PATIENT
  Age: 52 Year
  Sex: Male
  Weight: 75 kg

DRUGS (7)
  1. ADVIL [Suspect]
     Dosage: UNK
     Dates: start: 201304
  2. CELSENTRI [Concomitant]
     Indication: ANTIRETROVIRAL THERAPY
     Dosage: 600 MG, 2X/DAY
     Dates: start: 20120105
  3. ISENTRESS [Concomitant]
     Indication: ANTIRETROVIRAL THERAPY
     Dosage: 400 MG, 2X/DAY
     Dates: start: 20080610
  4. INTELENCE [Concomitant]
     Indication: ANTIRETROVIRAL THERAPY
     Dosage: 4 DF, 1X/DAY
     Dates: start: 20081125
  5. MECIR [Concomitant]
     Dosage: 0.4 MG
  6. LANTUS [Concomitant]
     Dosage: 16 IU, 1X/DAY (IN THE EVENING)
  7. NOVORAPID [Concomitant]
     Dosage: 3 DF A DAY

REACTIONS (5)
  - Headache [Unknown]
  - Chills [Unknown]
  - Vomiting [Unknown]
  - Phonophobia [Unknown]
  - Condition aggravated [Unknown]
